FAERS Safety Report 7365922-0 (Version None)
Quarter: 2011Q1

REPORT INFORMATION
  Report Type: 
  Country: None (occurrence: None)
  Receive Date: 20110322
  Receipt Date: 20100914
  Transmission Date: 20110831
  Serious: Yes (Other)
  Sender: FDA-Public Use
  Company Number: US-BAYER-201027872NA

PATIENT
  Sex: Female
  Weight: 96.599 kg

DRUGS (18)
  1. DEPO-PROVERA [Concomitant]
     Indication: MENORRHAGIA
  2. VENTOLIN HFA [Concomitant]
     Dosage: 0.108 MG, UNK
  3. PREDNISONE [Concomitant]
     Dosage: 20 MG, UNK
     Route: 048
     Dates: start: 20071113
  4. ADACEL [Concomitant]
     Indication: IMMUNISATION
     Dosage: 0.5 ML, UNK
     Route: 030
     Dates: start: 20090901
  5. AZITHROMYCIN [Concomitant]
     Dosage: 250 MG, UNK
     Route: 048
     Dates: start: 20080206
  6. FEXOFENADINE HCL [Concomitant]
     Dosage: 180 MG, UNK
     Route: 048
     Dates: start: 20080414
  7. DICYCLOMINE [Concomitant]
     Dosage: 20 MG, UNK
     Route: 048
     Dates: start: 20080226
  8. AMOXICILLIN [Concomitant]
     Dosage: 500 MG, TID
     Route: 048
  9. IBUPROFEN [Concomitant]
     Dosage: 800 MG, TID
     Route: 048
     Dates: start: 20000101
  10. FEXOFENADINE HCL [Concomitant]
     Dosage: DAILY DOSE 180 MG
     Route: 048
  11. CHERATUSSIN AC [Concomitant]
     Dosage: UNK
     Route: 048
     Dates: start: 20080417
  12. ACETAMINOPHEN AND HYDROCODONE BITARTRATE [Concomitant]
     Dosage: 5 UNK, UNK
     Route: 048
     Dates: start: 20080703, end: 20090901
  13. YAZ [Suspect]
     Dosage: UNK UNK, UNK
     Route: 048
     Dates: start: 20071128, end: 20080731
  14. TRIMETHOPRIM + SULFAMETHOXAZOLE [Concomitant]
     Dosage: UNK
     Route: 048
     Dates: start: 20080222
  15. UNCODEABLE ^INVESTIGATIONAL DRUG^ [Concomitant]
     Indication: IMMUNISATION
     Dosage: 0.5 ML, UNK
     Route: 030
     Dates: start: 20090901
  16. TRAMADOL HYDROCHLORIDE [Concomitant]
     Indication: PAIN
     Dosage: 50 MG, PRN
     Route: 048
     Dates: start: 20080618
  17. PROCHLORPERAZINE [Concomitant]
     Dosage: 10 MG, TID
     Route: 048
     Dates: end: 20090901
  18. HEPATITIS A VACCINE [Concomitant]
     Indication: IMMUNISATION
     Dosage: 0.5 ML, UNK
     Route: 030
     Dates: start: 20090901

REACTIONS (4)
  - DEEP VEIN THROMBOSIS [None]
  - GALLBLADDER DISORDER [None]
  - CHOLECYSTITIS CHRONIC [None]
  - BILIARY DYSKINESIA [None]
